FAERS Safety Report 16993296 (Version 1)
Quarter: 2019Q4

REPORT INFORMATION
  Report Type: Spontaneous
  Country: US (occurrence: US)
  Receive Date: 20190923
  Receipt Date: 20190923
  Transmission Date: 20200122
  Serious: No
  Sender: FDA-Public Use
  Company Number: None

PATIENT
  Sex: Female

DRUGS (1)
  1. OCTREOTIDE 1ML SDV 500MCG/ML APP/FRESENIUS KABI [Suspect]
     Active Substance: OCTREOTIDE
     Indication: HYPOGLYCAEMIA
     Dosage: ?          OTHER STRENGTH:500MCG/ML;?
     Route: 058
     Dates: start: 20170617

REACTIONS (2)
  - Decreased appetite [None]
  - Nightmare [None]
